FAERS Safety Report 18285658 (Version 1)
Quarter: 2020Q3

REPORT INFORMATION
  Report Type: Spontaneous
  Country: GB (occurrence: GB)
  Receive Date: 20200918
  Receipt Date: 20200918
  Transmission Date: 20201103
  Serious: Yes (Hospitalization)
  Sender: FDA-Public Use
  Company Number: GB-009507513-2009GBR005230

PATIENT
  Sex: Male

DRUGS (1)
  1. ISENTRESS [Suspect]
     Active Substance: RALTEGRAVIR POTASSIUM
     Dosage: 600MG 1 TABLET 2 TIMES PER DAY
     Route: 048

REACTIONS (2)
  - Adverse event [Not Recovered/Not Resolved]
  - Enteral nutrition [Not Recovered/Not Resolved]
